FAERS Safety Report 20562883 (Version 7)
Quarter: 2025Q4

REPORT INFORMATION
  Report Type: Report from Study
  Country: UY (occurrence: UY)
  Receive Date: 20220307
  Receipt Date: 20251202
  Transmission Date: 20260117
  Serious: Yes (Hospitalization, Other)
  Sender: ABBVIE
  Company Number: UY-ABBVIE-20K-168-3278240-00

PATIENT
  Age: 13 Year
  Sex: Female

DRUGS (2)
  1. HUMIRA [Suspect]
     Active Substance: ADALIMUMAB
     Indication: Juvenile idiopathic arthritis
     Dosage: FORM STRENGTH: 40MG?SOLUTION FOR INJECTION IN PRE-FILLED PEN
     Route: 058
     Dates: start: 20190404
  2. HUMIRA [Suspect]
     Active Substance: ADALIMUMAB
     Indication: Uveitis
     Dosage: HUMIRA AC 40/0.4?SOLUTION FOR INJECTION IN PRE-FILLED PEN
     Route: 058

REACTIONS (8)
  - Diabetic ketoacidosis [Recovering/Resolving]
  - Glaucoma [Recovering/Resolving]
  - Anaemia [Recovered/Resolved]
  - Cataract [Unknown]
  - Visual impairment [Unknown]
  - Eye operation [Unknown]
  - Investigation abnormal [Unknown]
  - Eye operation [Unknown]

NARRATIVE: CASE EVENT DATE: 20200203
